FAERS Safety Report 12842837 (Version 1)
Quarter: 2016Q4

REPORT INFORMATION
  Report Type: Spontaneous
  Country: FR (occurrence: FR)
  Receive Date: 20161013
  Receipt Date: 20161013
  Transmission Date: 20170207
  Serious: Yes (Hospitalization)
  Sender: FDA-Public Use
  Company Number: FR-AUROBINDO-AUR-APL-2016-10184

PATIENT
  Age: 39 Year
  Sex: Female

DRUGS (3)
  1. SERTRALINE ARROW CAPSULES 50MG [Suspect]
     Active Substance: SERTRALINE HYDROCHLORIDE
     Indication: DEPRESSION
     Dosage: 50 MG X 2 ONCE DAILY (IN SINGLE INTAKE IN THE MORNING)
     Route: 048
     Dates: start: 201512, end: 201602
  2. SERTRALINE ARROW CAPSULES 50MG [Suspect]
     Active Substance: SERTRALINE HYDROCHLORIDE
     Indication: POST-TRAUMATIC STRESS DISORDER
  3. SERTRALINE ARROW CAPSULES 50MG [Suspect]
     Active Substance: SERTRALINE HYDROCHLORIDE
     Indication: PANIC DISORDER

REACTIONS (2)
  - Product substitution issue [Unknown]
  - Drug ineffective [Unknown]

NARRATIVE: CASE EVENT DATE: 2015
